FAERS Safety Report 9221915 (Version 1)
Quarter: 2013Q2

REPORT INFORMATION
  Report Type: Spontaneous
  Country: US (occurrence: None)
  Receive Date: 20130410
  Receipt Date: 20130410
  Transmission Date: 20140414
  Serious: Yes (Hospitalization)
  Sender: FDA-Public Use
  Company Number: None

PATIENT
  Age: 94 Year
  Sex: Female
  Weight: 57.8 kg

DRUGS (5)
  1. COUMADIN [Suspect]
     Indication: THROMBOSIS PROPHYLAXIS
     Dosage: 5MG  QHS  PO?RECENT
     Route: 048
  2. COUMADIN [Suspect]
     Indication: OPEN REDUCTION OF FRACTURE
     Dosage: 5MG  QHS  PO?RECENT
     Route: 048
  3. VIT D [Concomitant]
  4. RISPERDAL [Concomitant]
  5. TYLENOL [Concomitant]

REACTIONS (3)
  - Duodenal ulcer [None]
  - Upper gastrointestinal haemorrhage [None]
  - Haemorrhagic anaemia [None]
